FAERS Safety Report 10746299 (Version 2)
Quarter: 2015Q1

REPORT INFORMATION
  Report Type: Spontaneous
  Country: CN (occurrence: CN)
  Receive Date: 20150128
  Receipt Date: 20150302
  Transmission Date: 20150721
  Serious: Yes (Other)
  Sender: FDA-Public Use
  Company Number: CN-009507513-1501CHN007755

PATIENT
  Age: 64 Year
  Sex: Male

DRUGS (2)
  1. CEPHALEXIN. [Concomitant]
     Active Substance: CEPHALEXIN
     Indication: ANTI-INFECTIVE THERAPY
     Dosage: UNK
  2. TIENAM [Suspect]
     Active Substance: CILASTATIN SODIUM\IMIPENEM
     Indication: LUNG INFECTION
     Route: 041

REACTIONS (1)
  - Anaphylactic shock [Recovering/Resolving]
